FAERS Safety Report 4916752-8 (Version None)
Quarter: 2006Q1

REPORT INFORMATION
  Report Type: 
  Country: None (occurrence: None)
  Receive Date: 20060214
  Receipt Date: 20060206
  Transmission Date: 20060701
  Serious: Yes (Other)
  Sender: FDA-Public Use
  Company Number: 2005150578

PATIENT
  Age: 49 Year
  Sex: Male
  Weight: 105 kg

DRUGS (6)
  1. LYRICA [Suspect]
     Indication: NEURALGIA
     Dosage: 600 MG (300 MG, 2 IN 1 D), ORAL
     Route: 048
     Dates: start: 20041001
  2. NEURONTIN [Suspect]
     Indication: NEURALGIA
  3. LISINOPRIL [Concomitant]
  4. ACETYLSALICYLIC ACID SRT [Concomitant]
  5. OMEPRAZOLE [Concomitant]
  6. GLUCOVANCE [Concomitant]

REACTIONS (10)
  - AMBLYOPIA STRABISMIC [None]
  - EYE DISORDER [None]
  - MACULAR OEDEMA [None]
  - OCULAR HYPERTENSION [None]
  - OEDEMA PERIPHERAL [None]
  - RETINAL DISORDER [None]
  - RETINAL OEDEMA [None]
  - THROMBOSIS [None]
  - VASCULAR OCCLUSION [None]
  - VISUAL ACUITY REDUCED [None]
